FAERS Safety Report 6945944-1 (Version None)
Quarter: 2010Q3

REPORT INFORMATION
  Report Type: 
  Country: None (occurrence: None)
  Receive Date: 20100827
  Receipt Date: 20100824
  Transmission Date: 20110219
  Serious: Yes (Death)
  Sender: FDA-Public Use
  Company Number: GB-JNJFOC-20100808035

PATIENT
  Age: 25 Year
  Sex: Female
  Weight: 48 kg

DRUGS (12)
  1. IBUPROFEN [Suspect]
     Indication: PRODUCT USED FOR UNKNOWN INDICATION
     Route: 048
  2. ALCOHOL [Suspect]
     Indication: PRODUCT USED FOR UNKNOWN INDICATION
     Route: 048
  3. CIPRALEX [Suspect]
     Indication: DEPRESSION
     Route: 048
  4. CIPRALEX [Suspect]
     Route: 048
  5. CIPRALEX [Suspect]
     Route: 048
  6. CIPRALEX [Suspect]
     Indication: ANXIETY
     Route: 048
  7. CIPRALEX [Suspect]
     Route: 048
  8. CIPRALEX [Suspect]
     Route: 048
  9. FLUOXETINE [Suspect]
     Indication: PRODUCT USED FOR UNKNOWN INDICATION
     Route: 048
  10. NORTRIPTYLINE HCL [Suspect]
     Indication: PRODUCT USED FOR UNKNOWN INDICATION
     Route: 048
  11. OXAZEPAM [Suspect]
     Indication: PRODUCT USED FOR UNKNOWN INDICATION
     Route: 048
  12. TEMAZEPAM [Suspect]
     Indication: PRODUCT USED FOR UNKNOWN INDICATION
     Route: 048

REACTIONS (2)
  - COMPLETED SUICIDE [None]
  - INTENTIONAL OVERDOSE [None]
